FAERS Safety Report 18132226 (Version 1)
Quarter: 2020Q3

REPORT INFORMATION
  Report Type: Report from Study
  Country: None (occurrence: US)
  Receive Date: 20200811
  Receipt Date: 20200811
  Transmission Date: 20201103
  Serious: Yes (Other)
  Sender: FDA-Public Use
  Company Number: US-ABBVIE-20K-163-3409318-00

PATIENT
  Age: 66 Year
  Sex: Male
  Weight: 61.29 kg

DRUGS (1)
  1. HUMIRA [Suspect]
     Active Substance: ADALIMUMAB
     Indication: PSORIASIS
     Route: 058
     Dates: start: 20161106

REACTIONS (10)
  - Infection [Unknown]
  - Spinal osteoarthritis [Unknown]
  - Calculus bladder [Unknown]
  - Arteriosclerosis [Unknown]
  - Hodgkin^s disease [Recovered/Resolved]
  - Nephrolithiasis [Unknown]
  - Lymphadenopathy [Recovered/Resolved]
  - Gastrointestinal inflammation [Unknown]
  - Gastrointestinal disorder [Unknown]
  - Psoriasis [Not Recovered/Not Resolved]

NARRATIVE: CASE EVENT DATE: 201811
